FAERS Safety Report 10336030 (Version 1)
Quarter: 2014Q3

REPORT INFORMATION
  Report Type: Spontaneous
  Country: US (occurrence: US)
  Receive Date: 20140723
  Receipt Date: 20140723
  Transmission Date: 20150326
  Serious: No
  Sender: FDA-Public Use
  Company Number: US-BRISTOL-MYERS SQUIBB COMPANY-19519131

PATIENT
  Age: 77 Year
  Sex: Male
  Weight: 86.17 kg

DRUGS (7)
  1. COUMADIN [Suspect]
     Active Substance: WARFARIN SODIUM
     Indication: ATRIAL FIBRILLATION
  2. COZAAR [Concomitant]
     Active Substance: LOSARTAN POTASSIUM
  3. TAMSULOSIN [Concomitant]
     Active Substance: TAMSULOSIN
  4. LANOXIN [Concomitant]
     Active Substance: DIGOXIN
  5. HCTZ [Concomitant]
     Active Substance: HYDROCHLOROTHIAZIDE
  6. DUTASTERIDE [Concomitant]
     Active Substance: DUTASTERIDE
  7. LOVASTATIN. [Concomitant]
     Active Substance: LOVASTATIN

REACTIONS (1)
  - Eye haemorrhage [Unknown]
